FAERS Safety Report 5612795-X (Version None)
Quarter: 2008Q1

REPORT INFORMATION
  Report Type: 
  Country: None (occurrence: None)
  Receive Date: 20080128
  Receipt Date: 20080116
  Transmission Date: 20080703
  Serious: Yes (Hospitalization, Other)
  Sender: FDA-Public Use
  Company Number: 2007-03822

PATIENT
  Age: 57 Year
  Sex: Male

DRUGS (2)
  1. VELCADE [Suspect]
     Indication: MULTIPLE MYELOMA
     Dosage: 2.40 MG, INTRAVENOUS
     Route: 042
     Dates: start: 20071008, end: 20071101
  2. DEXAMETHASONE TAB [Suspect]
     Indication: MULTIPLE MYELOMA
     Dosage: 40.00 MG
     Dates: start: 20071008, end: 20071101

REACTIONS (5)
  - CELLULITIS [None]
  - NO THERAPEUTIC RESPONSE [None]
  - PANCREATITIS [None]
  - PERITONEAL NECROSIS [None]
  - SEPSIS [None]
